FAERS Safety Report 16870107 (Version 1)
Quarter: 2019Q3

REPORT INFORMATION
  Report Type: Spontaneous
  Country: US (occurrence: US)
  Receive Date: 20190930
  Receipt Date: 20190930
  Transmission Date: 20191005
  Serious: Yes (Life-Threatening, Hospitalization)
  Sender: FDA-Public Use
  Company Number: US-MYLANLABS-2019M1091538

PATIENT
  Age: 26 Year
  Sex: Female

DRUGS (3)
  1. FENTANYL. [Suspect]
     Active Substance: FENTANYL
     Indication: ANAESTHESIA
     Route: 008
  2. DIGOXIN. [Suspect]
     Active Substance: DIGOXIN
     Indication: PRODUCT USED FOR UNKNOWN INDICATION
     Dosage: SHE RECEIVED 250 MCG OF DIGOXIN INADVERTENTLY THROUGH THE FIRST EPIDURAL INJECTION
     Route: 008
  3. MORPHINE [Suspect]
     Active Substance: MORPHINE
     Indication: ANAESTHESIA
     Route: 008

REACTIONS (5)
  - Accidental exposure to product [Recovered/Resolved]
  - Status epilepticus [Recovered/Resolved]
  - Toxicity to various agents [Recovered/Resolved]
  - Maternal exposure during pregnancy [Recovered/Resolved]
  - Meningitis chemical [Recovered/Resolved]
